FAERS Safety Report 12934175 (Version 1)
Quarter: 2016Q4

REPORT INFORMATION
  Report Type: Spontaneous
  Country: US (occurrence: US)
  Receive Date: 20161111
  Receipt Date: 20161111
  Transmission Date: 20170207
  Serious: Yes (Hospitalization)
  Sender: FDA-Public Use
  Company Number: US-BEH-2016075137

PATIENT
  Age: 48 Year
  Sex: Female
  Weight: 43.84 kg

DRUGS (19)
  1. MULTIVITAMINS [Concomitant]
     Active Substance: VITAMINS
  2. ACETAMINOPHEN. [Concomitant]
     Active Substance: ACETAMINOPHEN
  3. LIDOCAINE. [Concomitant]
     Active Substance: LIDOCAINE
  4. EPIPEN [Concomitant]
     Active Substance: EPINEPHRINE
  5. CYMBALTA [Concomitant]
     Active Substance: DULOXETINE HYDROCHLORIDE
  6. CIMZIA [Concomitant]
     Active Substance: CERTOLIZUMAB PEGOL
  7. PRIVIGEN [Suspect]
     Active Substance: HUMAN IMMUNOGLOBULIN G
     Indication: IMMUNODEFICIENCY COMMON VARIABLE
     Dosage: 25 G, QMT
     Route: 042
     Dates: start: 20160706, end: 201608
  8. OXYCODONE [Concomitant]
     Active Substance: OXYCODONE
  9. LOPERAMIDE [Concomitant]
     Active Substance: LOPERAMIDE
  10. HEPARIN [Concomitant]
     Active Substance: HEPARIN SODIUM
  11. METHADONE [Concomitant]
     Active Substance: METHADONE HYDROCHLORIDE
  12. LANSOPRAZOLE. [Concomitant]
     Active Substance: LANSOPRAZOLE
  13. DIPHENHYDRAMINE. [Concomitant]
     Active Substance: DIPHENHYDRAMINE
  14. ONDANSETRON [Concomitant]
     Active Substance: ONDANSETRON
  15. PRIVIGEN [Suspect]
     Active Substance: HUMAN IMMUNOGLOBULIN G
     Dosage: 25 G, QMT
     Route: 042
     Dates: start: 20161104
  16. SODIUM CHLORIDE. [Concomitant]
     Active Substance: SODIUM CHLORIDE
  17. PROVENTIL [Concomitant]
     Active Substance: ALBUTEROL
  18. VITAMIN B12 [Concomitant]
     Active Substance: CYANOCOBALAMIN
  19. VITAMIN D2 [Concomitant]
     Active Substance: ERGOCALCIFEROL

REACTIONS (2)
  - Hospitalisation [Unknown]
  - Chills [Unknown]

NARRATIVE: CASE EVENT DATE: 201608
